FAERS Safety Report 14735169 (Version 1)
Quarter: 2018Q2

REPORT INFORMATION
  Report Type: Spontaneous
  Country: US (occurrence: US)
  Receive Date: 20180403
  Receipt Date: 20180403
  Transmission Date: 20180711
  Serious: Yes (Other)
  Sender: FDA-Public Use
  Company Number: None

PATIENT
  Age: 66 Year
  Sex: Female
  Weight: 68.04 kg

DRUGS (2)
  1. IRBESARTAN. [Concomitant]
     Active Substance: IRBESARTAN
  2. IRBESARTAN TABLETS 150MG, 90 TABLETS [Suspect]
     Active Substance: IRBESARTAN
     Indication: HYPERTENSION
     Route: 048
     Dates: start: 20171021, end: 20171021

REACTIONS (2)
  - Product substitution issue [None]
  - Pharyngeal oedema [None]

NARRATIVE: CASE EVENT DATE: 20171021
